FAERS Safety Report 9940949 (Version 2)
Quarter: 2014Q1

REPORT INFORMATION
  Report Type: Spontaneous
  Country: MX (occurrence: MX)
  Receive Date: 20140303
  Receipt Date: 20140328
  Transmission Date: 20141002
  Serious: Yes (Death, Other)
  Sender: FDA-Public Use
  Company Number: MX-JNJFOC-20140214157

PATIENT
  Sex: 0

DRUGS (5)
  1. DOXORUBICIN [Suspect]
     Indication: HODGKIN^S DISEASE
     Dosage: ON DAY 1 AND 15
     Route: 042
  2. ADRIAMYCIN [Suspect]
     Indication: HODGKIN^S DISEASE
     Dosage: ON DAY 1 AND 15
     Route: 065
  3. METHOTREXATE [Suspect]
     Indication: HODGKIN^S DISEASE
     Dosage: ON DAY 1 AND 15
     Route: 042
  4. PREDNISONE [Suspect]
     Indication: HODGKIN^S DISEASE
     Dosage: DAYS 1 TO 14
     Route: 042
  5. VINBLASTINE [Suspect]
     Indication: HODGKIN^S DISEASE
     Dosage: ON DAY 1 AND 15
     Route: 042

REACTIONS (5)
  - Disease progression [Fatal]
  - Hypothyroidism [Unknown]
  - Thyroiditis [Unknown]
  - Goitre [Unknown]
  - Off label use [Unknown]
